FAERS Safety Report 9725336 (Version 1)
Quarter: 2013Q4

REPORT INFORMATION
  Report Type: Spontaneous
  Country: JP (occurrence: JP)
  Receive Date: 20131203
  Receipt Date: 20131203
  Transmission Date: 20140711
  Serious: Yes (Other)
  Sender: FDA-Public Use
  Company Number: JP-MYLANLABS-2013S1026474

PATIENT
  Age: 23 Year
  Sex: Female

DRUGS (13)
  1. ACICLOVIR [Suspect]
     Indication: HERPES ZOSTER
     Dosage: FROM DAY -7 TO 35
     Route: 065
  2. ACICLOVIR [Suspect]
     Indication: HERPES VIRUS INFECTION
     Dosage: FROM DAY -7 TO 35
     Route: 065
  3. ACICLOVIR [Suspect]
     Indication: HERPES ZOSTER
     Dosage: FOR 7 DAYS
     Route: 041
  4. ACICLOVIR [Suspect]
     Indication: HERPES VIRUS INFECTION
     Dosage: FOR 7 DAYS
     Route: 041
  5. ACICLOVIR [Suspect]
     Indication: HERPES ZOSTER
     Dosage: FROM DAY 120 TO 183
     Route: 048
  6. ACICLOVIR [Suspect]
     Indication: HERPES VIRUS INFECTION
     Dosage: FROM DAY 120 TO 183
     Route: 048
  7. CYCLOPHOSPHAMIDE [Concomitant]
     Indication: BONE MARROW CONDITIONING REGIMEN
     Dosage: 60 MG/KG/DAY FROM DAYS -4 TO -3
     Route: 065
  8. METHOTREXATE [Concomitant]
     Indication: PROPHYLAXIS AGAINST GRAFT VERSUS HOST DISEASE
     Route: 065
  9. TACROLIMUS [Concomitant]
     Indication: PROPHYLAXIS AGAINST GRAFT VERSUS HOST DISEASE
     Dosage: 0.4MG FROM DAY -1 TO 183
     Route: 065
  10. PREDNISOLONE [Concomitant]
     Indication: ACUTE GRAFT VERSUS HOST DISEASE
     Dosage: 1 MG/KG
     Route: 065
  11. LANSOPRAZOLE [Concomitant]
     Dosage: FROM DAY -14 TO 183
     Route: 065
  12. VORICONAZOLE [Concomitant]
     Dosage: FROM DAY 120 TO 183
     Route: 065
  13. REBAMIPIDE [Concomitant]
     Dosage: FROM DAY 86 TO 183
     Route: 065

REACTIONS (1)
  - Drug-induced liver injury [Recovered/Resolved]
